FAERS Safety Report 6681373-6 (Version None)
Quarter: 2010Q2

REPORT INFORMATION
  Report Type: 
  Country: None (occurrence: None)
  Receive Date: 20100414
  Receipt Date: 20100408
  Transmission Date: 20101027
  Serious: Yes (Other)
  Sender: FDA-Public Use
  Company Number: A0854150A

PATIENT
  Age: 55 Year
  Sex: Female

DRUGS (4)
  1. ADVAIR DISKUS 100/50 [Suspect]
     Indication: ASTHMA
     Dosage: 1PUFF PER DAY
     Route: 055
     Dates: start: 20010101
  2. SINGULAIR [Concomitant]
  3. ALBUTEROL [Concomitant]
  4. ANTIBIOTIC [Concomitant]

REACTIONS (4)
  - ANGIOEDEMA [None]
  - DRY MOUTH [None]
  - DYSPHONIA [None]
  - PALATAL OEDEMA [None]
